FAERS Safety Report 15957645 (Version 1)
Quarter: 2019Q1

REPORT INFORMATION
  Report Type: Spontaneous
  Country: US (occurrence: US)
  Receive Date: 20190213
  Receipt Date: 20190213
  Transmission Date: 20190417
  Serious: No
  Sender: FDA-Public Use
  Company Number: US-SA-2019SA039096

PATIENT

DRUGS (7)
  1. ARAVA [Suspect]
     Active Substance: LEFLUNOMIDE
  2. METHOTREXATE. [Suspect]
     Active Substance: METHOTREXATE
  3. CIMZIA [Suspect]
     Active Substance: CERTOLIZUMAB PEGOL
  4. ORENCIA [Suspect]
     Active Substance: ABATACEPT
  5. XELJANZ [Suspect]
     Active Substance: TOFACITINIB CITRATE
     Dosage: 11 MG, QD
     Route: 048
  6. ENBREL [Suspect]
     Active Substance: ETANERCEPT
  7. HUMIRA [Suspect]
     Active Substance: ADALIMUMAB

REACTIONS (4)
  - Mouth ulceration [Unknown]
  - Rash [Unknown]
  - Unevaluable event [Unknown]
  - Drug ineffective [Unknown]
